FAERS Safety Report 4797419-6 (Version None)
Quarter: 2005Q4

REPORT INFORMATION
  Report Type: 
  Country: None (occurrence: None)
  Receive Date: 20051013
  Receipt Date: 20051003
  Transmission Date: 20060501
  Serious: Yes (Disabling)
  Sender: FDA-Public Use
  Company Number: US-KINGPHARMUSA00001-K200501297

PATIENT
  Age: 84 Year
  Sex: Male

DRUGS (10)
  1. ALTACE [Suspect]
     Indication: DIABETES MELLITUS
     Dosage: 10 MG, QD
     Route: 048
     Dates: start: 20030101, end: 20050101
  2. MOVELAT [Concomitant]
     Dosage: 3 U, UNK
     Route: 061
  3. PENICILLIN V [Concomitant]
     Dosage: 1,000 MG, UNK
  4. PARACETAMOL [Concomitant]
     Dosage: 3000 MG, UNK
  5. TAMSULOSIN [Concomitant]
     Dosage: 400 UG, UNK
  6. ISMN ^GENERICON^ [Concomitant]
     Dosage: 40 MG, UNK
  7. CELIPROLOL [Concomitant]
     Dosage: 200 MG, UNK
  8. INDORAMIN [Concomitant]
     Dosage: 40 MG, UNK
  9. AMLODIPINE [Concomitant]
     Dosage: 5 MG, UNK
  10. NITROLINGUAL PUMPSPRAY [Concomitant]
     Dosage: 400 UG, UNK
     Route: 049

REACTIONS (1)
  - MOUTH ULCERATION [None]
